FAERS Safety Report 7399208-5 (Version None)
Quarter: 2011Q2

REPORT INFORMATION
  Report Type: 
  Country: None (occurrence: None)
  Receive Date: 20110407
  Receipt Date: 20110404
  Transmission Date: 20111010
  Serious: Yes (Death)
  Sender: FDA-Public Use
  Company Number: FR-B.I. PHARMACEUTICALS,INC./RIDGEFIELD-2011-FF-00203FF

PATIENT
  Sex: Male
  Weight: 108 kg

DRUGS (3)
  1. KARDEGIC [Concomitant]
     Dosage: 160 MG
     Route: 048
  2. AMLODIPINE [Concomitant]
     Indication: HYPERTENSION
  3. PRADAXA [Suspect]
     Route: 048

REACTIONS (1)
  - PULMONARY EMBOLISM [None]
